FAERS Safety Report 9177153 (Version 1)
Quarter: 2013Q1

REPORT INFORMATION
  Report Type: Spontaneous
  Country: US (occurrence: US)
  Receive Date: 20130321
  Receipt Date: 20130321
  Transmission Date: 20140127
  Serious: Yes (Other)
  Sender: FDA-Public Use
  Company Number: US-JNJFOC-20130311326

PATIENT
  Sex: 0

DRUGS (2)
  1. DOXORUBICIN [Suspect]
     Indication: BREAST CANCER METASTATIC
     Dosage: EITHER RECEIVED 20, 30, 45 AND 60 MG/M2 (MAXIMUM OF 8 DOSES)
     Route: 042
  2. LAPATINIB [Suspect]
     Indication: BREAST CANCER METASTATIC
     Route: 048

REACTIONS (1)
  - Hypoalbuminaemia [Unknown]
